FAERS Safety Report 16648731 (Version 1)
Quarter: 2019Q3

REPORT INFORMATION
  Report Type: Spontaneous
  Country: US (occurrence: US)
  Receive Date: 20190730
  Receipt Date: 20190730
  Transmission Date: 20191004
  Serious: No
  Sender: FDA-Public Use
  Company Number: US-MAYNE PHARMA-2019MYN000105

PATIENT

DRUGS (3)
  1. ESTAZOLAM. [Suspect]
     Active Substance: ESTAZOLAM
     Indication: INSOMNIA
     Dosage: 3 MG, QHS
     Route: 048
     Dates: start: 2015, end: 2015
  2. ESTAZOLAM. [Suspect]
     Active Substance: ESTAZOLAM
     Dosage: 1 MG, QHS
     Route: 048
     Dates: start: 2015, end: 201812
  3. ESTAZOLAM. [Suspect]
     Active Substance: ESTAZOLAM
     Dosage: 1.5 MG, QHS
     Route: 048
     Dates: start: 201812

REACTIONS (4)
  - Drug ineffective [Unknown]
  - Accidental overdose [Unknown]
  - Insomnia [Unknown]
  - Intentional overdose [Unknown]
